FAERS Safety Report 13082249 (Version 8)
Quarter: 2017Q2

REPORT INFORMATION
  Report Type: Report from Study
  Country: None (occurrence: ES)
  Receive Date: 20170103
  Receipt Date: 20170413
  Transmission Date: 20170830
  Serious: Yes (Hospitalization, Other)
  Sender: FDA-Public Use
  Company Number: ES-ABBVIE-16P-144-1735301-00

PATIENT
  Age: 72 Year
  Sex: Male
  Weight: 90 kg

DRUGS (10)
  1. ACFOL [Concomitant]
     Active Substance: FOLIC ACID
     Indication: PRODUCT USED FOR UNKNOWN INDICATION
  2. DUODOPA [Suspect]
     Active Substance: CARBIDOPA\LEVODOPA
     Dosage: MD: 9 + 3 ML; CD: 7 ML / H, ED: 5 ML, NIGHT PUMP: CD5 ML / H, ED: 4 ML
     Route: 050
  3. DUODOPA [Suspect]
     Active Substance: CARBIDOPA\LEVODOPA
     Dosage: MORNING PUMP: CD: 7 ML / H, ED: 5 ML, NIGHT PUMP: CD5 ML / H, ED: 4 ML
     Route: 050
  4. SINEMET [Concomitant]
     Active Substance: CARBIDOPA\LEVODOPA
     Indication: PRODUCT USED FOR UNKNOWN INDICATION
     Dosage: AT NIGHT
  5. DUODOPA [Suspect]
     Active Substance: CARBIDOPA\LEVODOPA
     Indication: PARKINSON^S DISEASE
     Dosage: SEE NARRATIVE
     Route: 050
     Dates: start: 20160714
  6. DUODOPA [Suspect]
     Active Substance: CARBIDOPA\LEVODOPA
     Dosage: MORNING PUMP: CD: 5 ML / H, ED: 5 ML, NIGHT PUMP: CD5 ML / H, ED: 4 ML
     Route: 050
     Dates: end: 20170131
  7. DUODOPA [Suspect]
     Active Substance: CARBIDOPA\LEVODOPA
     Dosage: DC: 7ML/H; DE: 4ML AT NIGHT
     Route: 050
  8. MADOPAR [Concomitant]
     Active Substance: BENSERAZIDE HYDROCHLORIDE\LEVODOPA
     Indication: PRODUCT USED FOR UNKNOWN INDICATION
     Dosage: 200/50
     Route: 048
     Dates: start: 20170131
  9. MADOPAR [Concomitant]
     Active Substance: BENSERAZIDE HYDROCHLORIDE\LEVODOPA
     Route: 048
  10. IRON [Concomitant]
     Active Substance: IRON
     Indication: PRODUCT USED FOR UNKNOWN INDICATION
     Route: 048

REACTIONS (31)
  - Anxiety [Recovered/Resolved]
  - Bradykinesia [Recovering/Resolving]
  - Dystonia [Not Recovered/Not Resolved]
  - Arthralgia [Recovered/Resolved]
  - Viral diarrhoea [Recovered/Resolved]
  - Freezing phenomenon [Unknown]
  - On and off phenomenon [Recovering/Resolving]
  - Apathy [Recovering/Resolving]
  - Insomnia [Recovered/Resolved]
  - Radiculopathy [Unknown]
  - Hypokinesia [Unknown]
  - Aphonia [Unknown]
  - Pain in extremity [Not Recovered/Not Resolved]
  - Muscle fatigue [Not Recovered/Not Resolved]
  - Pain in extremity [Recovered/Resolved]
  - Lumbar spinal stenosis [Not Recovered/Not Resolved]
  - Disorientation [Not Recovered/Not Resolved]
  - Blood folate decreased [Unknown]
  - Weight decreased [Recovered/Resolved]
  - Muscular weakness [Not Recovered/Not Resolved]
  - Diabetic neuropathy [Not Recovered/Not Resolved]
  - Anxiety [Not Recovered/Not Resolved]
  - Depression [Not Recovered/Not Resolved]
  - Fatigue [Recovering/Resolving]
  - Insomnia [Recovered/Resolved]
  - Restlessness [Not Recovered/Not Resolved]
  - Musculoskeletal stiffness [Unknown]
  - On and off phenomenon [Unknown]
  - Pain [Recovered/Resolved]
  - Blood iron decreased [Unknown]
  - Insomnia [Not Recovered/Not Resolved]

NARRATIVE: CASE EVENT DATE: 20160905
